FAERS Safety Report 7954935-3 (Version None)
Quarter: 2011Q4

REPORT INFORMATION
  Report Type: 
  Country: None (occurrence: None)
  Receive Date: 20111202
  Receipt Date: 20111124
  Transmission Date: 20120403
  Serious: Yes (Hospitalization)
  Sender: FDA-Public Use
  Company Number: JP-CEPHALON-2011003727

PATIENT
  Sex: Female
  Weight: 43 kg

DRUGS (9)
  1. BENDAMUSTINE HCL [Suspect]
     Indication: B-CELL LYMPHOMA
     Route: 042
     Dates: start: 20110208, end: 20110209
  2. BENDAMUSTINE HCL [Suspect]
     Route: 042
     Dates: start: 20110317, end: 20110318
  3. GANCICLOVIR [Suspect]
     Route: 042
     Dates: start: 20110408, end: 20110425
  4. RITUXIMAB [Concomitant]
     Route: 042
     Dates: start: 20110316, end: 20110316
  5. CEFOTIAM HYDROCHLORIDE [Concomitant]
     Dates: start: 20110228, end: 20110426
  6. CEFTAZIDIME [Concomitant]
     Dates: start: 20110228
  7. RITUXIMAB [Concomitant]
     Indication: B-CELL LYMPHOMA
     Route: 042
     Dates: start: 20110207, end: 20110316
  8. DIGOXIN [Concomitant]
  9. GANCICLOVIR [Suspect]
     Indication: CYTOMEGALOVIRUS INFECTION
     Route: 042
     Dates: start: 20110303, end: 20110317

REACTIONS (3)
  - PYREXIA [None]
  - PANCYTOPENIA [None]
  - CYTOMEGALOVIRUS INFECTION [None]
